FAERS Safety Report 11884664 (Version 1)
Quarter: 2016Q1

REPORT INFORMATION
  Report Type: Spontaneous
  Country: US (occurrence: US)
  Receive Date: 20160104
  Receipt Date: 20160104
  Transmission Date: 20160526
  Serious: Yes (Death, Hospitalization)
  Sender: FDA-Public Use
  Company Number: US-ALKEM-001412

PATIENT
  Age: 50 Year
  Sex: Male
  Weight: 74.4 kg

DRUGS (6)
  1. HYDROCHLOROTHIAZIDE. [Concomitant]
     Active Substance: HYDROCHLOROTHIAZIDE
     Indication: HYPERTENSION
  2. LISINOPRIL. [Concomitant]
     Active Substance: LISINOPRIL
     Indication: HYPERTENSION
  3. VALPROIC ACID. [Interacting]
     Active Substance: VALPROIC ACID
     Indication: SCHIZOAFFECTIVE DISORDER
     Dosage: DIVALPROEX SODIUM
  4. QUETIAPINE/QUETIAPINE FUMARATE [Suspect]
     Active Substance: QUETIAPINE FUMARATE
     Indication: SCHIZOAFFECTIVE DISORDER
  5. CLOZAPINE. [Interacting]
     Active Substance: CLOZAPINE
     Indication: SCHIZOAFFECTIVE DISORDER
     Dosage: CLOZAPINE TITRATION: RECEIVED 50 MG, 100 MG, 150 MG, 250 MG  AND 350 MG.
  6. BENZATROPINE [Concomitant]
     Active Substance: BENZTROPINE

REACTIONS (4)
  - Tardive dyskinesia [Unknown]
  - Myocarditis [Fatal]
  - Psychotic disorder [Unknown]
  - Drug interaction [Unknown]
